FAERS Safety Report 9783131 (Version 1)
Quarter: 2013Q4

REPORT INFORMATION
  Report Type: Spontaneous
  Country: US (occurrence: None)
  Receive Date: 20131223
  Receipt Date: 20131223
  Transmission Date: 20140711
  Serious: No
  Sender: FDA-Public Use
  Company Number: EUS-2011-00787

PATIENT
  Age: 22 Year
  Sex: Male

DRUGS (16)
  1. ERWINASE [Suspect]
     Indication: ACUTE LYMPHOCYTIC LEUKAEMIA
     Dosage: 51750 IU, 2 DOSES ON 11 AND 14 NOV 2011
     Route: 042
     Dates: start: 20111111, end: 20111114
  2. ZOFRAN (ONDANSETRON) [Concomitant]
  3. SENNA (SENNA ALEXANDRINA) [Concomitant]
  4. BACTRIM (SULFAMETHOXAZOLE) [Concomitant]
  5. LEVAQUIN (LEVOFLOXACIN) [Concomitant]
  6. MERCAPTOPURINE [Concomitant]
  7. PROTONIX (PANTOPRAZOLE) [Concomitant]
  8. DIPHENHYDRAMINE [Concomitant]
  9. ATIVAN (LORAZEPAM) [Concomitant]
  10. METHOTREXATE [Concomitant]
  11. HEPARIN [Concomitant]
  12. LIDOCAINE [Concomitant]
  13. LORAZEPAM [Concomitant]
  14. ROPIVACAINE [Concomitant]
  15. SODIUM CHLORIDE [Concomitant]
  16. VINCRISTINE [Concomitant]

REACTIONS (3)
  - Nausea [None]
  - Vomiting [None]
  - Fatigue [None]
